FAERS Safety Report 25936443 (Version 1)
Quarter: 2025Q4

REPORT INFORMATION
  Report Type: Spontaneous
  Country: US (occurrence: None)
  Receive Date: 20251017
  Receipt Date: 20251017
  Transmission Date: 20260118
  Serious: Yes (Other)
  Sender: FDA-CTU
  Company Number: None

PATIENT
  Age: 75 Year
  Sex: Female
  Weight: 114.75 kg

DRUGS (1)
  1. GAMMAGARD LIQUID [Suspect]
     Active Substance: HUMAN IMMUNOGLOBULIN G
     Indication: Chronic inflammatory demyelinating polyradiculoneuropathy
     Dosage: 230 G GRAM(S) OVER 3 DAYS Q4WEEK INTRAVENOUS?
     Route: 042
     Dates: start: 20250603

REACTIONS (4)
  - Peripheral swelling [None]
  - Abdominal distension [None]
  - Infusion related reaction [None]
  - Cardiac disorder [None]

NARRATIVE: CASE EVENT DATE: 20251016
